FAERS Safety Report 21992718 (Version 2)
Quarter: 2023Q1

REPORT INFORMATION
  Report Type: Spontaneous
  Country: IT (occurrence: IT)
  Receive Date: 20230215
  Receipt Date: 20230227
  Transmission Date: 20230417
  Serious: Yes (Other)
  Sender: FDA-Public Use
  Company Number: IT-SUN PHARMACEUTICAL INDUSTRIES LTD-2023RR-378472

PATIENT
  Age: 44 Year
  Sex: Male

DRUGS (3)
  1. LENALIDOMIDE [Suspect]
     Active Substance: LENALIDOMIDE
     Indication: Hodgkin^s disease
     Dosage: UNK
     Route: 065
  2. IBRUTINIB [Suspect]
     Active Substance: IBRUTINIB
     Indication: Hodgkin^s disease
     Dosage: UNK
     Route: 065
  3. METHOTREXATE [Suspect]
     Active Substance: METHOTREXATE
     Indication: Prophylaxis
     Dosage: UNK
     Route: 065

REACTIONS (4)
  - Disease progression [Unknown]
  - Therapy partial responder [Unknown]
  - Thrombocytopenia [Unknown]
  - Neutropenia [Unknown]
